FAERS Safety Report 9416595 (Version 2)
Quarter: 2013Q3

REPORT INFORMATION
  Report Type: Spontaneous
  Country: US (occurrence: None)
  Receive Date: 20130719
  Receipt Date: 20130823
  Transmission Date: 20140515
  Serious: Yes (Other)
  Sender: FDA-Public Use
  Company Number: DSU-2013-03958

PATIENT
  Age: 59 Year
  Sex: Female

DRUGS (1)
  1. BENICAR [Suspect]
     Indication: HYPERTENSION
     Route: 048
     Dates: start: 201005, end: 2010

REACTIONS (6)
  - Diarrhoea [None]
  - Nausea [None]
  - Weight decreased [None]
  - Fatigue [None]
  - Flatulence [None]
  - Colitis ulcerative [None]
